FAERS Safety Report 5807137-0 (Version None)
Quarter: 2008Q3

REPORT INFORMATION
  Report Type: 
  Country: None (occurrence: None)
  Receive Date: 20080709
  Receipt Date: 20080709
  Transmission Date: 20090109
  Serious: No
  Sender: FDA-Public Use
  Company Number: None

PATIENT
  Sex: Female

DRUGS (1)
  1. BONIVA [Suspect]
     Dosage: INFUSE EVERY 3 MON

REACTIONS (4)
  - ABASIA [None]
  - ARTHRALGIA [None]
  - PAIN [None]
  - WHEELCHAIR USER [None]
